FAERS Safety Report 5024255-8 (Version None)
Quarter: 2006Q2

REPORT INFORMATION
  Report Type: 
  Country: None (occurrence: None)
  Receive Date: 20060607
  Receipt Date: 20060603
  Transmission Date: 20061013
  Serious: Yes (Hospitalization)
  Sender: FDA-Public Use
  Company Number: 224068

PATIENT
  Age: 56 Year
  Sex: Male

DRUGS (2)
  1. METALYSE (TENECTEPLASE) PWDR + SOLVENT, INJECTION SOLN, 50MG [Suspect]
     Dosage: 8000 UNIT, INTRAVENOUS
     Route: 042
  2. HEPARIN [Concomitant]

REACTIONS (2)
  - GASTRIC PERFORATION [None]
  - MYOCARDIAL INFARCTION [None]
